FAERS Safety Report 13627123 (Version 1)
Quarter: 2017Q2

REPORT INFORMATION
  Report Type: Spontaneous
  Country: US (occurrence: US)
  Receive Date: 20170608
  Receipt Date: 20170608
  Transmission Date: 20170830
  Serious: No
  Sender: FDA-Public Use
  Company Number: None

PATIENT
  Age: 72 Year
  Sex: Female
  Weight: 67.5 kg

DRUGS (1)
  1. EXTRA STRENGTH ACETAMINOPHEN 500 MG [Suspect]
     Active Substance: ACETAMINOPHEN
     Indication: ARTHRITIS
     Dosage: ?          QUANTITY:100 TABLET(S);?
     Route: 048
     Dates: start: 20170301, end: 20170528

REACTIONS (3)
  - Somnolence [None]
  - Wrong drug administered [None]
  - Drug dispensing error [None]

NARRATIVE: CASE EVENT DATE: 20170501
